FAERS Safety Report 4706621-0 (Version None)
Quarter: 2005Q3

REPORT INFORMATION
  Report Type: 
  Country: None (occurrence: None)
  Receive Date: 20050705
  Receipt Date: 20050415
  Transmission Date: 20060218
  Serious: Yes (Other)
  Sender: FDA-Public Use
  Company Number: BR-ROCHE-402312

PATIENT
  Age: 17 Year
  Sex: Male

DRUGS (1)
  1. ROACUTAN [Suspect]
     Indication: ACNE
     Route: 048
     Dates: start: 20041115

REACTIONS (1)
  - HAEMATOCHEZIA [None]
